FAERS Safety Report 12564392 (Version 2)
Quarter: 2016Q3

REPORT INFORMATION
  Report Type: Spontaneous
  Country: US (occurrence: US)
  Receive Date: 20160718
  Receipt Date: 20160901
  Transmission Date: 20161109
  Serious: No
  Sender: FDA-Public Use
  Company Number: US-BRISTOL-MYERS SQUIBB COMPANY-BMS-2016-056272

PATIENT
  Sex: Female

DRUGS (1)
  1. SPRYCEL [Suspect]
     Active Substance: DASATINIB
     Indication: CHRONIC MYELOID LEUKAEMIA
     Dosage: 100 MG, QD
     Route: 048

REACTIONS (9)
  - Diarrhoea [Unknown]
  - Alopecia [Unknown]
  - Arthralgia [Unknown]
  - Hypertension [Unknown]
  - Muscle spasms [Unknown]
  - Pain [Unknown]
  - Vaginal haemorrhage [Unknown]
  - Musculoskeletal pain [Unknown]
  - Headache [Unknown]
